FAERS Safety Report 8489617-5 (Version None)
Quarter: 2012Q3

REPORT INFORMATION
  Report Type: 
  Country: None (occurrence: None)
  Receive Date: 20120705
  Receipt Date: 20120625
  Transmission Date: 20120928
  Serious: Yes (Hospitalization)
  Sender: FDA-Public Use
  Company Number: US-BAYER-2012-056350

PATIENT
  Age: 81 Year
  Sex: Female
  Weight: 79.5 kg

DRUGS (9)
  1. ASPIRIN [Suspect]
     Indication: ILL-DEFINED DISORDER
     Dosage: 81 MG, UNK
  2. PRILOSEC [Concomitant]
  3. CLONIDINE [Concomitant]
  4. XARELTO [Suspect]
     Indication: HIP SURGERY
  5. LOVENOX [Concomitant]
  6. LOVASTATIN [Concomitant]
  7. HYDROCHLOROTHIAZIDE [Concomitant]
  8. XARELTO [Suspect]
     Indication: THROMBOSIS PROPHYLAXIS
     Dosage: 10 MG, QD
     Route: 048
     Dates: start: 20120511
  9. LORTAB [Concomitant]

REACTIONS (2)
  - PERFORATED ULCER [None]
  - URINARY RETENTION [None]
